FAERS Safety Report 13083191 (Version 3)
Quarter: 2017Q2

REPORT INFORMATION
  Report Type: Spontaneous
  Country: GB (occurrence: GB)
  Receive Date: 20170104
  Receipt Date: 20170602
  Transmission Date: 20170830
  Serious: Yes (Death, Hospitalization, Other)
  Sender: FDA-Public Use
  Company Number: GB-BAXTER-2016BAX049324

PATIENT
  Age: 52 Year
  Sex: Male

DRUGS (13)
  1. ZAPONEX [Suspect]
     Active Substance: CLOZAPINE
     Dosage: START PERIOD 3270 DAYS, PM (NOCTE) 250 MG
     Route: 048
     Dates: start: 20070510, end: 20161121
  2. CLOZAPINE. [Concomitant]
     Active Substance: CLOZAPINE
     Indication: PRODUCT USED FOR UNKNOWN INDICATION
     Route: 065
     Dates: start: 20020225, end: 20070509
  3. DOXORUBICIN HYDROCHLORIDE. [Suspect]
     Active Substance: DOXORUBICIN HYDROCHLORIDE
     Dosage: STARTED ANOTHER ROUND OF R-CHOP CHEMOTHERAPY
     Route: 048
  4. CYCLOPHOSPHAMIDE INJECTION 1G [Suspect]
     Active Substance: CYCLOPHOSPHAMIDE
     Indication: B-CELL LYMPHOMA
     Dosage: R-CHOP CHEMOTHERAPY
     Route: 065
     Dates: end: 20160806
  5. DOXORUBICIN HYDROCHLORIDE. [Suspect]
     Active Substance: DOXORUBICIN HYDROCHLORIDE
     Indication: B-CELL LYMPHOMA
     Dosage: (LIPOSOME INJECTION) R-CHOP CHEMOTHERAPY
     Route: 048
     Dates: end: 20160806
  6. CYCLOPHOSPHAMIDE INJECTION 1G [Suspect]
     Active Substance: CYCLOPHOSPHAMIDE
     Dosage: STARTED ANOTHER ROUND OF R-CHOP CHEMOTHERAPY
     Route: 065
  7. PREDNISOLONE. [Suspect]
     Active Substance: PREDNISOLONE
     Indication: B-CELL LYMPHOMA
     Dosage: R-CHOP CHEMOTHERAPY
     Route: 048
     Dates: end: 20160806
  8. RITUXIMAB [Suspect]
     Active Substance: RITUXIMAB
     Indication: B-CELL LYMPHOMA
     Dosage: R-CHOP CHEMOTHERAPY
     Route: 065
     Dates: end: 20160806
  9. VINCRISTINE [Suspect]
     Active Substance: VINCRISTINE
     Indication: B-CELL LYMPHOMA
     Dosage: R-CHOP CHEMOTHERAPY
     Route: 065
     Dates: end: 20160806
  10. ZAPONEX [Suspect]
     Active Substance: CLOZAPINE
     Indication: PRODUCT USED FOR UNKNOWN INDICATION
     Dosage: START PERIOD 3270 DAYS, AM (MANE) 100MG
     Route: 048
     Dates: start: 20070510, end: 20161121
  11. VINCRISTINE [Suspect]
     Active Substance: VINCRISTINE
     Dosage: STARTED ANOTHER ROUND OF R-CHOP CHEMOTHERAPY
     Route: 065
  12. PREDNISOLONE. [Suspect]
     Active Substance: PREDNISOLONE
     Dosage: STARTED ANOTHER ROUND OF R-CHOP CHEMOTHERAPY
     Route: 048
  13. RITUXIMAB [Suspect]
     Active Substance: RITUXIMAB
     Dosage: STARTED ANOTHER ROUND OF R-CHOP CHEMOTHERAPY
     Route: 065

REACTIONS (19)
  - White blood cell count increased [Recovered/Resolved]
  - Neutropenia [Recovered/Resolved]
  - Agranulocytosis [Recovered/Resolved]
  - Thrombocytopenia [Recovered/Resolved]
  - White blood cell count increased [Recovered/Resolved]
  - Therapy non-responder [Unknown]
  - Platelet count decreased [Recovered/Resolved]
  - Leukopenia [Recovered/Resolved]
  - Platelet count decreased [Not Recovered/Not Resolved]
  - White blood cell count decreased [Recovered/Resolved]
  - Neutrophil count increased [Not Recovered/Not Resolved]
  - Contraindicated product administered [Not Recovered/Not Resolved]
  - Agranulocytosis [Recovered/Resolved]
  - B-cell lymphoma [Fatal]
  - Thrombocytopenia [Recovered/Resolved]
  - Neutrophil count decreased [Recovered/Resolved]
  - Neutrophil count increased [Recovered/Resolved]
  - Platelet count decreased [Recovered/Resolved]
  - Platelet count decreased [Not Recovered/Not Resolved]

NARRATIVE: CASE EVENT DATE: 20160422
